FAERS Safety Report 18665359 (Version 6)
Quarter: 2021Q3

REPORT INFORMATION
  Report Type: Spontaneous
  Country: GB (occurrence: GB)
  Receive Date: 20201225
  Receipt Date: 20210915
  Transmission Date: 20211014
  Serious: Yes (Hospitalization, Other)
  Sender: FDA-Public Use
  Company Number: GB-SA-2019SA054114

PATIENT
  Age: 69 Year
  Sex: Female

DRUGS (29)
  1. CHLORHEXIDINE [Concomitant]
     Active Substance: CHLORHEXIDINE
     Indication: PROPHYLAXIS
     Dosage: UNK UNK, QD
     Route: 048
     Dates: start: 20151105
  2. DEXAMETHASONE. [Concomitant]
     Active Substance: DEXAMETHASONE
     Indication: PROPHYLAXIS
     Dosage: 8 MG
     Route: 048
     Dates: start: 20151105
  3. CLOPIDOGREL [Concomitant]
     Active Substance: CLOPIDOGREL BISULFATE
     Dosage: UNK
     Route: 048
     Dates: start: 20170701
  4. CHLORHEXIDINE GLUCONATE. [Concomitant]
     Active Substance: CHLORHEXIDINE GLUCONATE
     Indication: PROPHYLAXIS
     Dosage: UNK
     Route: 048
     Dates: start: 20151105
  5. TRASTUZUMAB. [Suspect]
     Active Substance: TRASTUZUMAB
     Dosage: 350 MG, Q3W, MAINTENANCE DOSE
     Route: 042
     Dates: start: 20151203, end: 20180427
  6. PACLITAXEL. [Suspect]
     Active Substance: PACLITAXEL
     Dosage: 139 MG, Q4W
     Route: 042
     Dates: start: 20151210
  7. RANITIDINE. [Concomitant]
     Active Substance: RANITIDINE
     Indication: PROPHYLAXIS
     Dosage: 150 MG, UNK 1 TABLET TWICE A DAY FOR 3 DAYS
     Route: 048
     Dates: start: 20151203
  8. ROSUVASTATIN. [Concomitant]
     Active Substance: ROSUVASTATIN
     Dosage: 5 MG
     Route: 048
     Dates: start: 201806, end: 201911
  9. DOCETAXEL. [Suspect]
     Active Substance: DOCETAXEL
     Indication: BREAST CANCER METASTATIC
     Dosage: 124 MG, Q3W
     Route: 042
     Dates: start: 20151106, end: 20151106
  10. PERTUZUMAB. [Suspect]
     Active Substance: PERTUZUMAB
     Dosage: 420 MG, Q3W, MAINTENANCE DOSE
     Route: 042
     Dates: start: 20151203
  11. ATORVASTATIN [Concomitant]
     Active Substance: ATORVASTATIN
     Dosage: 40 MG, QD
     Route: 048
     Dates: start: 20170701
  12. TRASTUZUMAB. [Suspect]
     Active Substance: TRASTUZUMAB
     Dosage: 450 MG, TOTAL, LOADING DOSE
     Route: 041
     Dates: start: 20151105, end: 20151105
  13. LORATADINE. [Concomitant]
     Active Substance: LORATADINE
     Dosage: UNK
     Route: 048
     Dates: start: 20151119, end: 20151217
  14. LANSOPRAZOLE. [Concomitant]
     Active Substance: LANSOPRAZOLE
     Dosage: 30 MG, QD
     Route: 048
     Dates: start: 20170312
  15. ASPIRIN [ACETYLSALICYLIC ACID] [Concomitant]
     Active Substance: ASPIRIN
     Dosage: 75 MG, QD
     Route: 048
     Dates: start: 20170523, end: 20170701
  16. ROSUVASTATIN CALCIUM. [Concomitant]
     Active Substance: ROSUVASTATIN CALCIUM
     Dosage: 5 MG
     Route: 048
     Dates: start: 201806, end: 201911
  17. PACLITAXEL. [Suspect]
     Active Substance: PACLITAXEL
     Dosage: 68 MG, WEEKLY
     Route: 042
     Dates: start: 20160303, end: 20160310
  18. PERTUZUMAB. [Suspect]
     Active Substance: PERTUZUMAB
     Indication: BREAST CANCER METASTATIC
     Dosage: 840 MG, TOTAL, LOADING DOSE
     Route: 042
     Dates: start: 20151105, end: 20151105
  19. METOCLOPRAMIDE. [Concomitant]
     Active Substance: METOCLOPRAMIDE
     Indication: PROPHYLAXIS
     Dosage: 10 MG
     Route: 048
     Dates: start: 20151203
  20. TRIMETHOPRIM. [Concomitant]
     Active Substance: TRIMETHOPRIM
     Indication: URINARY TRACT INFECTION
     Dosage: 200 MG, QD
     Route: 048
     Dates: start: 20151210
  21. LOPERAMIDE [Concomitant]
     Active Substance: LOPERAMIDE
     Indication: PROPHYLAXIS
     Dosage: 4 TABLET TWICE A DAY FOR 3 DAYS
     Route: 048
     Dates: start: 20151203
  22. CETIRIZINE [Concomitant]
     Active Substance: CETIRIZINE HYDROCHLORIDE
     Indication: PROPHYLAXIS
     Dosage: 10 MG, UNK 1 TABLET AT NIGHT FOR 3 DAYS
     Route: 048
     Dates: start: 20151203
  23. EZETIMIBE. [Concomitant]
     Active Substance: EZETIMIBE
     Dosage: UNK
     Route: 048
     Dates: start: 2019
  24. ACETYLSALICYLIC ACID [Concomitant]
     Active Substance: ASPIRIN
     Dosage: 775 MG, QD
     Route: 065
     Dates: start: 20170523, end: 20170701
  25. TRASTUZUMAB. [Suspect]
     Active Substance: TRASTUZUMAB
     Dosage: 336 MG, Q3W
     Route: 042
     Dates: start: 20180518, end: 20190427
  26. TRAMADOL HYDROCHLORIDE. [Concomitant]
     Active Substance: TRAMADOL HYDROCHLORIDE
     Indication: PROPHYLAXIS
     Dosage: 50 MG
     Route: 048
     Dates: start: 20151105
  27. PACLITAXEL. [Suspect]
     Active Substance: PACLITAXEL
     Indication: BREAST CANCER METASTATIC
     Dosage: 138 MG, Q4W
     Route: 042
     Dates: start: 20151203, end: 20160203
  28. PACLITAXEL. [Suspect]
     Active Substance: PACLITAXEL
     Dosage: 102 MG, Q4W
     Route: 042
     Dates: start: 20160204, end: 20160218
  29. RAMIPRIL. [Concomitant]
     Active Substance: RAMIPRIL
     Dosage: 1.25 MG, QD
     Route: 048
     Dates: start: 20170523

REACTIONS (21)
  - Tremor [Recovered/Resolved]
  - Palmar erythema [Recovered/Resolved]
  - Diarrhoea [Recovered/Resolved]
  - Hypertension [Recovered/Resolved]
  - Malaise [Recovered/Resolved]
  - Dysuria [Recovered/Resolved]
  - Dyspnoea [Recovered/Resolved]
  - Chest discomfort [Recovered/Resolved]
  - Urinary tract infection [Recovered/Resolved]
  - Neuropathy peripheral [Recovered/Resolved]
  - Neuropathy peripheral [Recovered/Resolved]
  - Tendonitis [Not Recovered/Not Resolved]
  - Cystitis noninfective [Recovered/Resolved]
  - Anaphylactic reaction [Recovered/Resolved]
  - Defaecation urgency [Recovered/Resolved]
  - Bacterial test positive [Recovered/Resolved]
  - Mucosal inflammation [Recovered/Resolved]
  - Urosepsis [Recovered/Resolved]
  - Rash [Recovered/Resolved]
  - Fatigue [Recovered/Resolved]
  - Hypersensitivity [Recovered/Resolved]

NARRATIVE: CASE EVENT DATE: 201512
